FAERS Safety Report 17219634 (Version 1)
Quarter: 2019Q4

REPORT INFORMATION
  Report Type: Spontaneous
  Country: US (occurrence: US)
  Receive Date: 20191209
  Receipt Date: 20191209
  Transmission Date: 20200122
  Serious: No
  Sender: FDA-Public Use
  Company Number: None

PATIENT
  Age: 59 Year
  Sex: Female

DRUGS (1)
  1. OLOPATADINE  0.1% [Suspect]
     Active Substance: OLOPATADINE
     Dates: start: 20180727, end: 20180827

REACTIONS (2)
  - Product substitution issue [None]
  - Treatment failure [None]

NARRATIVE: CASE EVENT DATE: 20180727
